FAERS Safety Report 12447081 (Version 3)
Quarter: 2017Q2

REPORT INFORMATION
  Report Type: Spontaneous
  Country: JP (occurrence: JP)
  Receive Date: 20160608
  Receipt Date: 20170614
  Transmission Date: 20170830
  Serious: Yes (Other)
  Sender: FDA-Public Use
  Company Number: JP-BAYER-2016-109175

PATIENT
  Age: 80 Year
  Sex: Male

DRUGS (3)
  1. BAYASPIRIN [Suspect]
     Active Substance: ASPIRIN
     Dosage: 20 MG, UNK
     Route: 048
  2. WARFARIN POTASSIUM [Interacting]
     Active Substance: WARFARIN POTASSIUM
     Indication: ATRIAL FIBRILLATION
     Dosage: 3.5 MG, UNK
     Route: 048
  3. PRASUGREL. [Interacting]
     Active Substance: PRASUGREL
     Dosage: 2 MG, UNK
     Route: 048

REACTIONS (5)
  - Drug administration error [None]
  - Puncture site haemorrhage [Recovered/Resolved]
  - Skin ulcer [Recovered/Resolved]
  - Labelled drug-drug interaction medication error [None]
  - Vascular pseudoaneurysm [Recovered/Resolved]
